FAERS Safety Report 4380463-0 (Version None)
Quarter: 2004Q2

REPORT INFORMATION
  Report Type: 
  Country: None (occurrence: None)
  Receive Date: 20040618
  Receipt Date: 20040503
  Transmission Date: 20050107
  Serious: Yes (Hospitalization)
  Sender: FDA-Public Use
  Company Number: PHNU2004DE01713

PATIENT
  Age: 70 Year
  Sex: Female
  Weight: 81 kg

DRUGS (3)
  1. ZOMETA [Suspect]
     Indication: OSTEOPOROSIS
     Dosage: 4 MG, ONCE/SINGLE
     Route: 042
     Dates: start: 20040204, end: 20040204
  2. CORTISONE [Suspect]
     Indication: POLYMYALGIA RHEUMATICA
     Route: 065
     Dates: start: 20030101
  3. AZATHIOPRINE [Concomitant]
     Indication: POLYMYALGIA RHEUMATICA
     Route: 065
     Dates: start: 20030101

REACTIONS (16)
  - AKATHISIA [None]
  - ALOPECIA [None]
  - CHILLS [None]
  - ELECTROLYTE IMBALANCE [None]
  - INTERVERTEBRAL DISC PROTRUSION [None]
  - LUMBAR SPINAL STENOSIS [None]
  - MUSCULAR WEAKNESS [None]
  - MYOPATHY [None]
  - MYOPATHY STEROID [None]
  - NAUSEA [None]
  - NUCLEAR MAGNETIC RESONANCE IMAGING ABNORMAL [None]
  - PARAESTHESIA [None]
  - PYREXIA [None]
  - RESTLESS LEGS SYNDROME [None]
  - SPONDYLOLISTHESIS ACQUIRED [None]
  - TREMOR [None]
